FAERS Safety Report 10707747 (Version 2)
Quarter: 2015Q1

REPORT INFORMATION
  Report Type: Report from Study
  Country: BR (occurrence: BR)
  Receive Date: 20150113
  Receipt Date: 20150129
  Transmission Date: 20150721
  Serious: Yes (Hospitalization)
  Sender: FDA-Public Use
  Company Number: PHHY2015BR003060

PATIENT
  Sex: Male
  Weight: 53 kg

DRUGS (8)
  1. OMEPRAZOLE. [Concomitant]
     Active Substance: OMEPRAZOLE
     Indication: GASTRIC DISORDER
     Dosage: 1 DF, QD
     Route: 065
     Dates: start: 2012
  2. VITAMIN A [Concomitant]
     Active Substance: VITAMIN A
     Indication: VITAMIN SUPPLEMENTATION
     Dosage: 1 DF, QD
     Route: 065
  3. VITAMIN K [Concomitant]
     Active Substance: PHYTONADIONE
     Indication: VITAMIN SUPPLEMENTATION
     Dosage: 1 DF, QD
     Route: 065
  4. URSACOL [Concomitant]
     Active Substance: URSODIOL
     Indication: LIVER DISORDER
     Dosage: 2 DF, QD
     Route: 065
  5. VITAMIN D [Concomitant]
     Active Substance: CHOLECALCIFEROL
     Indication: VITAMIN SUPPLEMENTATION
     Dosage: 1 DF, QD
     Route: 065
  6. ZOTEON [Suspect]
     Active Substance: TOBRAMYCIN
     Indication: CYSTIC FIBROSIS
     Dosage: UNKNOWN DOSE, FOR 28 DAYS, WITH INTERVAL OF OTHER 28 DAYS
     Route: 065
     Dates: start: 201410
  7. CREON [Concomitant]
     Active Substance: PANCRELIPASE AMYLASE\PANCRELIPASE LIPASE\PANCRELIPASE PROTEASE
     Indication: PANCREATIC ENZYMES ABNORMAL
     Dosage: DURING THE MEALS
     Route: 065
  8. TOCOPHEROL [Concomitant]
     Active Substance: TOCOPHEROL
     Indication: VITAMIN SUPPLEMENTATION
     Dosage: 1 DF, QD
     Route: 065

REACTIONS (1)
  - Pneumonia [Recovered/Resolved]
